FAERS Safety Report 7053525-7 (Version None)
Quarter: 2010Q4

REPORT INFORMATION
  Report Type: 
  Country: None (occurrence: None)
  Receive Date: 20101020
  Receipt Date: 20101008
  Transmission Date: 20110411
  Serious: Yes (Other)
  Sender: FDA-Public Use
  Company Number: US-PFIZER INC-2010107627

PATIENT
  Age: 37 Year
  Sex: Female

DRUGS (3)
  1. GEODON [Suspect]
     Indication: BIPOLAR DISORDER
     Dosage: 20MG IN AM / 60MG IN PM
     Route: 048
     Dates: start: 20100816, end: 20100825
  2. XANAX [Concomitant]
     Dosage: UNK
  3. CELEXA [Concomitant]
     Dosage: UNK

REACTIONS (1)
  - SWOLLEN TONGUE [None]
